FAERS Safety Report 14708597 (Version 2)
Quarter: 2018Q4

REPORT INFORMATION
  Report Type: Spontaneous
  Country: US (occurrence: US)
  Receive Date: 20180403
  Receipt Date: 20181126
  Transmission Date: 20190204
  Serious: Yes (Death)
  Sender: FDA-Public Use
  Company Number: US-PFIZER INC-2018132498

PATIENT
  Sex: Male

DRUGS (8)
  1. AMPICILLIN SODIUM. [Suspect]
     Active Substance: AMPICILLIN SODIUM
     Indication: SEPSIS
     Dosage: UNK
     Dates: start: 2017
  2. GENTAMICIN SULFATE. [Suspect]
     Active Substance: GENTAMICIN SULFATE
     Indication: ESCHERICHIA INFECTION
  3. CEFEPIME HCL [Suspect]
     Active Substance: CEFEPIME HYDROCHLORIDE
     Indication: SEPSIS
     Dosage: UNK
     Dates: start: 2017
  4. AMPICILLIN SODIUM. [Suspect]
     Active Substance: AMPICILLIN SODIUM
     Indication: ESCHERICHIA INFECTION
  5. GENTAMICIN SULFATE. [Suspect]
     Active Substance: GENTAMICIN SULFATE
     Indication: SEPSIS
     Dosage: UNK
     Dates: start: 2017
  6. ACYCLOVIR. [Suspect]
     Active Substance: ACYCLOVIR
     Indication: SEPSIS
     Dosage: UNK
     Dates: start: 2017
  7. ACYCLOVIR. [Suspect]
     Active Substance: ACYCLOVIR
     Indication: ESCHERICHIA INFECTION
  8. CEFEPIME HCL [Suspect]
     Active Substance: CEFEPIME HYDROCHLORIDE
     Indication: ESCHERICHIA INFECTION

REACTIONS (1)
  - Drug ineffective [Fatal]

NARRATIVE: CASE EVENT DATE: 2017
